FAERS Safety Report 9817234 (Version 2)
Quarter: 2015Q4

REPORT INFORMATION
  Report Type: Report from Study
  Country: US (occurrence: US)
  Receive Date: 20140114
  Receipt Date: 20151028
  Transmission Date: 20160305
  Serious: Yes (Hospitalization)
  Sender: FDA-Public Use
  Company Number: US-ROCHE-1332419

PATIENT
  Age: 72 Year
  Sex: Female

DRUGS (3)
  1. LANTUS [Concomitant]
     Active Substance: INSULIN GLARGINE
     Indication: DIABETES MELLITUS
  2. LUCENTIS [Suspect]
     Active Substance: RANIBIZUMAB
     Indication: EYE DISORDER
     Route: 065
  3. LUCENTIS [Suspect]
     Active Substance: RANIBIZUMAB
     Indication: DIABETIC EYE DISEASE

REACTIONS (5)
  - Drug ineffective [Unknown]
  - Influenza [Unknown]
  - Myocardial infarction [Unknown]
  - Nasopharyngitis [Unknown]
  - Corneal disorder [Unknown]

NARRATIVE: CASE EVENT DATE: 20140108
